FAERS Safety Report 9267971 (Version 2)
Quarter: 2013Q4

REPORT INFORMATION
  Report Type: Report from Study
  Country: US (occurrence: US)
  Receive Date: 20130502
  Receipt Date: 20131211
  Transmission Date: 20140711
  Serious: Yes (Hospitalization, Other)
  Sender: FDA-Public Use
  Company Number: US-ALEXION-A201201642

PATIENT
  Age: 16 Year
  Sex: Female
  Weight: 46.5 kg

DRUGS (5)
  1. SOLIRIS [Suspect]
     Indication: PAROXYSMAL NOCTURNAL HAEMOGLOBINURIA
     Dosage: 900 MG, Q2W
     Route: 042
     Dates: start: 20110922
  2. SOLIRIS [Suspect]
     Indication: OFF LABEL USE
     Dosage: 600 MG, QW
     Route: 042
     Dates: start: 2011, end: 2011
  3. BACTRIM [Suspect]
     Indication: LYMPHADENOPATHY
     Dosage: UNK, BID
     Route: 048
     Dates: start: 20120820, end: 20120827
  4. EFFEXOR [Suspect]
     Indication: DEPRESSION
     Dosage: 75 MG, QD
     Route: 048
     Dates: end: 20120904
  5. EFFEXOR [Suspect]
     Dosage: 37.5 MG, QD
     Route: 048
     Dates: start: 20120904

REACTIONS (19)
  - Neutropenia [Recovered/Resolved]
  - Migraine [Not Recovered/Not Resolved]
  - Pyrexia [Recovered/Resolved]
  - Drug hypersensitivity [Unknown]
  - Haemoglobin decreased [Unknown]
  - Lymphadenopathy [Not Recovered/Not Resolved]
  - Dyspnoea [Unknown]
  - Chest pain [Unknown]
  - Fatigue [Unknown]
  - Off label use [Unknown]
  - Lymphadenitis [Unknown]
  - Folliculitis [Unknown]
  - Lethargy [Unknown]
  - Malaise [Unknown]
  - Photosensitivity reaction [Unknown]
  - Neck pain [Unknown]
  - Arthralgia [Unknown]
  - Vomiting [Unknown]
  - Lip blister [Unknown]
